FAERS Safety Report 7917735-6 (Version None)
Quarter: 2011Q4

REPORT INFORMATION
  Report Type: 
  Country: None (occurrence: None)
  Receive Date: 20111116
  Receipt Date: 20111110
  Transmission Date: 20120403
  Serious: Yes (Other)
  Sender: FDA-Public Use
  Company Number: US-ABBOTT-11P-163-0873479-00

PATIENT
  Sex: Female
  Weight: 60.836 kg

DRUGS (8)
  1. HUMIRA [Suspect]
     Indication: PSORIATIC ARTHROPATHY
     Dates: end: 20090101
  2. VERAPAMIL [Concomitant]
     Indication: CARDIAC MURMUR
  3. HUMIRA [Suspect]
     Indication: PSORIASIS
     Dates: start: 20110801
  4. VITAMIN TAB [Concomitant]
     Indication: VITAMIN SUPPLEMENTATION
  5. HUMIRA [Suspect]
     Indication: PSORIASIS
  6. VERAPAMIL [Concomitant]
     Indication: HEART RATE INCREASED
  7. SYNTHROID [Concomitant]
     Indication: THYROIDECTOMY
  8. HUMIRA [Suspect]
     Indication: PSORIATIC ARTHROPATHY
     Dates: start: 20110801, end: 20110801

REACTIONS (4)
  - VARICOSE VEIN [None]
  - JOINT SWELLING [None]
  - PSORIASIS [None]
  - PAIN IN EXTREMITY [None]
